FAERS Safety Report 26072057 (Version 1)
Quarter: 2025Q4

REPORT INFORMATION
  Report Type: Spontaneous
  Country: US (occurrence: None)
  Receive Date: 20251120
  Receipt Date: 20251120
  Transmission Date: 20260118
  Serious: No
  Sender: FDA-CTU
  Company Number: None

PATIENT
  Age: 49 Year
  Sex: Female
  Weight: 115.2 kg

DRUGS (1)
  1. VYEPTI [Suspect]
     Active Substance: EPTINEZUMAB-JJMR
     Indication: Migraine prophylaxis
     Dosage: OTHER FREQUENCY : EVERY 12 WEEKS;?
     Route: 041
     Dates: start: 20250828

REACTIONS (1)
  - Hot flush [None]

NARRATIVE: CASE EVENT DATE: 20251120
